FAERS Safety Report 8436510-X (Version None)
Quarter: 2012Q2

REPORT INFORMATION
  Report Type: 
  Country: None (occurrence: None)
  Receive Date: 20120614
  Receipt Date: 20120605
  Transmission Date: 20120825
  Serious: Yes (Other)
  Sender: FDA-Public Use
  Company Number: US-GLAXOSMITHKLINE-A0980216A

PATIENT
  Age: 35 Year
  Sex: Female

DRUGS (5)
  1. EFFEXOR [Suspect]
     Indication: PRODUCT USED FOR UNKNOWN INDICATION
     Dosage: 150MG UNKNOWN
     Route: 065
  2. CO Q 10 [Concomitant]
  3. MULTIPLE VITAMIN [Concomitant]
  4. LAMOTRIGINE [Suspect]
     Indication: BIPOLAR DISORDER
     Dosage: 1TAB PER DAY
     Route: 048
     Dates: start: 20110901, end: 20120514
  5. SIMVASTATIN [Concomitant]

REACTIONS (8)
  - INSOMNIA [None]
  - ELECTROLYTE IMBALANCE [None]
  - MANIA [None]
  - AGITATION [None]
  - DEPRESSION [None]
  - RASH PRURITIC [None]
  - FATIGUE [None]
  - RASH [None]
